FAERS Safety Report 4921445-7 (Version None)
Quarter: 2006Q1

REPORT INFORMATION
  Report Type: 
  Country: None (occurrence: None)
  Receive Date: 20060221
  Receipt Date: 20060208
  Transmission Date: 20060701
  Serious: Yes (Hospitalization)
  Sender: FDA-Public Use
  Company Number: 2005051657

PATIENT
  Age: 54 Year
  Sex: Female

DRUGS (9)
  1. SUTENT [Suspect]
     Indication: GASTROINTESTINAL STROMAL TUMOUR
     Dosage: 50 MG (50 MG), ORAL
     Route: 048
  2. CALCIUM GLUCONATE [Concomitant]
  3. HORMONIN (ESTRADIOL , ESTERIOL, ESTRONE) [Concomitant]
  4. LANSOPRAZOLE [Concomitant]
  5. DIFLUCAN [Concomitant]
  6. DOMPERIDONE [Concomitant]
  7. DEXAMETHASONE TAB [Concomitant]
  8. OXAZEPAM [Concomitant]
  9. TRANEXAMIC ACID [Concomitant]

REACTIONS (6)
  - BLOOD PRESSURE DECREASED [None]
  - CHILLS [None]
  - DIZZINESS [None]
  - DYSPNOEA [None]
  - PYREXIA [None]
  - UPPER RESPIRATORY TRACT INFECTION [None]
